FAERS Safety Report 21244613 (Version 2)
Quarter: 2022Q3

REPORT INFORMATION
  Report Type: Spontaneous
  Country: IT (occurrence: IT)
  Receive Date: 20220823
  Receipt Date: 20220907
  Transmission Date: 20221027
  Serious: Yes (Death)
  Sender: FDA-Public Use
  Company Number: None

PATIENT
  Age: 87 Year
  Sex: Female

DRUGS (7)
  1. LAGEVRIO [Suspect]
     Active Substance: MOLNUPIRAVIR
     Indication: COVID-19 treatment
     Dosage: UNK
     Route: 048
     Dates: start: 20220707, end: 20220712
  2. LASIX [Concomitant]
     Active Substance: FUROSEMIDE
     Indication: Hypertension
     Dosage: LASIX*30CPR 25MG ? FUROSEMIDE
     Route: 048
  3. OMEGA-3-ACID ETHYL ESTERS [Concomitant]
     Active Substance: OMEGA-3-ACID ETHYL ESTERS
     Indication: Hypercholesterolaemia
     Dosage: OLEVIA*20CPS MOLLI 1000MG - OMEGA POLYENOIC
     Route: 048
  4. OLMESARTAN MEDOXOMIL [Concomitant]
     Active Substance: OLMESARTAN MEDOXOMIL
     Indication: Cardiac failure
     Dosage: PLAUNAC*28CPR RIV 20MG - OLMESARTAN MEDOXOMIL
     Route: 048
  5. TRAZODONE HYDROCHLORIDE [Concomitant]
     Active Substance: TRAZODONE HYDROCHLORIDE
     Indication: Depression
     Dosage: TRITTICO*OS GTT 30ML 60MG/ML - TRAZODONE 1800MG 30ML
     Route: 048
  6. QUETIAPINE FUMARATE [Concomitant]
     Active Substance: QUETIAPINE FUMARATE
     Indication: Dementia
     Dosage: QUETIAPINA SAN*30CPR RIV 25MG
     Route: 048
  7. TICLOPIDINE [TICLOPIDINE HYDROCHLORIDE] [Concomitant]
     Indication: Ischaemia
     Dosage: TICLOPIDINE PENSA*30CPR RIV 250MG ?TICLOPIDINE

REACTIONS (1)
  - Death [Fatal]

NARRATIVE: CASE EVENT DATE: 20220724
